FAERS Safety Report 21734223 (Version 1)
Quarter: 2022Q4

REPORT INFORMATION
  Report Type: Spontaneous
  Country: BE (occurrence: BE)
  Receive Date: 20221215
  Receipt Date: 20221215
  Transmission Date: 20230113
  Serious: Yes (Disabling)
  Sender: FDA-Public Use
  Company Number: None

PATIENT
  Age: 42 Year
  Sex: Female
  Weight: 70 kg

DRUGS (1)
  1. MIRENA [Suspect]
     Active Substance: LEVONORGESTREL
     Indication: Contraception
     Dosage: 20?G/DAY
     Route: 015

REACTIONS (6)
  - Acne [Recovered/Resolved]
  - Loss of libido [Recovered/Resolved]
  - Dizziness [Recovered/Resolved]
  - Weight increased [Recovered/Resolved]
  - Irritability [Recovered/Resolved]
  - Amenorrhoea [Recovered/Resolved]
